FAERS Safety Report 5165235-1 (Version None)
Quarter: 2006Q4

REPORT INFORMATION
  Report Type: 
  Country: None (occurrence: None)
  Receive Date: 20061124
  Receipt Date: 20061111
  Transmission Date: 20070319
  Serious: Yes (Other)
  Sender: FDA-Public Use
  Company Number: 2006141571

PATIENT
  Age: 35 Year
  Sex: Male

DRUGS (3)
  1. PIROXICAM [Suspect]
     Indication: TORTICOLLIS
     Dosage: 40 MG (40 MG, 1 IN 1 D), INTRAMUSCULAR
     Route: 030
  2. NIMESULIDE           (NIMESULIDE) [Concomitant]
  3. VOVERAN                    (DICLOFENAC SODIUM) [Concomitant]

REACTIONS (1)
  - INJECTION SITE NECROSIS [None]
